FAERS Safety Report 16378663 (Version 2)
Quarter: 2021Q1

REPORT INFORMATION
  Report Type: Spontaneous
  Country: BG (occurrence: BG)
  Receive Date: 20190531
  Receipt Date: 20210125
  Transmission Date: 20210419
  Serious: Yes (Other)
  Sender: FDA-Public Use
  Company Number: BG-ASTRAZENECA-2018SE41725

PATIENT
  Age: 50 Year
  Sex: Male

DRUGS (16)
  1. XGEVA [Suspect]
     Active Substance: DENOSUMAB
     Indication: PROSTATE CANCER
     Dosage: UNK
     Route: 065
     Dates: start: 20141029
  2. LUTETIUM (177LU) OXODOTREOTIDE [Suspect]
     Active Substance: LUTETIUM OXODOTREOTIDE LU-177
     Indication: PROSTATE CANCER
     Dosage: 4 APPLICATIONS EGIN THERAPY WHEN THERE ARE METASTASES IN THE SOFT
     Route: 065
  3. LUTETIUM (LU 177) [Suspect]
     Active Substance: LUTETIUM LU-177
     Indication: PROSTATE CANCER
     Dosage: 4 APPLICATIONS, BEGIN THERAPY WHEN THERE ARE METASTASES IN THE SOFT TISSUES)
     Route: 065
  4. DOCETAXEL. [Suspect]
     Active Substance: DOCETAXEL
     Indication: PROSTATE CANCER
  5. LEUPRORELIN [Suspect]
     Active Substance: LEUPROLIDE ACETATE
     Indication: PROSTATE CANCER
     Dosage: 4 APPLICATIONS, BEGIN THERAPY WHEN THERE ARE METASTASES IN THE SOFT TISSUES)
     Dates: start: 20141029
  6. CABAZITAXEL [Suspect]
     Active Substance: CABAZITAXEL
     Indication: PROSTATE CANCER
     Dosage: 12 COURSES
     Route: 065
     Dates: start: 20160519, end: 20170126
  7. RADIUM RA 223 DICHLORIDE [Suspect]
     Active Substance: RADIUM RA-223 DICHLORIDE
     Indication: PROSTATE CANCER
     Dosage: 4.4MBQ
     Route: 042
     Dates: start: 20170418, end: 20170712
  8. DOCETAXEL. [Suspect]
     Active Substance: DOCETAXEL
     Indication: PROSTATE CANCER
     Dosage: (5 COURSES BECAUSE OF THE RISE IN PSA, CHEMOTHERAPY HAS BEGUN)
     Route: 065
  9. LEUPRORELIN ACETATE [Suspect]
     Active Substance: LEUPROLIDE ACETATE
     Indication: PROSTATE CANCER
     Dosage: 4 APPLICATIONS, BEGIN THERAPY WHEN THERE ARE METASTASES IN THE SOFT
     Dates: start: 20141029
  10. BICALUTAMIDE. [Suspect]
     Active Substance: BICALUTAMIDE
     Indication: PROSTATE CANCER
     Dosage: UNK, UNK
     Route: 065
     Dates: start: 20141029
  11. ABIRATERONE. [Suspect]
     Active Substance: ABIRATERONE ACETATE
     Indication: PROSTATE CANCER
     Dosage: 1000 MG,QD
     Route: 048
     Dates: start: 201705
  12. ENZALUTAMIDE [Suspect]
     Active Substance: ENZALUTAMIDE
     Indication: PROSTATE CANCER
     Dosage: 160 MG, ONCE DAILY (AFTER INEFFECTIVE TREATMENT NEW GENERATION IS INCLUDED ANTIANDROGEN)
  13. CETYLPYRIDINIUM CHLORIDE. [Suspect]
     Active Substance: CETYLPYRIDINIUM CHLORIDE
     Indication: PROSTATE CANCER
     Dosage: 4.4MBQ
     Route: 042
  14. RADIUM RA 223 DICHLORIDE [Suspect]
     Active Substance: RADIUM RA-223 DICHLORIDE
     Dosage: UNKNOWN FREQ. 4 INTRAVENOUS APPLICATIONS, TOTAL APPLICATIVE ACTIVITY 39.6 MBQ / 55UNK
     Route: 042
  15. CABAZITAXEL [Suspect]
     Active Substance: CABAZITAXEL
     Indication: PROSTATE CANCER
  16. BICALUTAMIDE. [Suspect]
     Active Substance: BICALUTAMIDE
     Indication: PROSTATE CANCER
     Dosage: UNK UNK, UNKNOWN FREQ.
     Route: 065
     Dates: start: 20141029

REACTIONS (10)
  - Metastases to soft tissue [Unknown]
  - Drug ineffective [Unknown]
  - Drug resistance [Unknown]
  - Malignant neoplasm progression [Unknown]
  - Prostate cancer recurrent [Unknown]
  - Metastases to lymph nodes [Unknown]
  - Prostatic specific antigen increased [Unknown]
  - Metastases to lung [Unknown]
  - Prostate cancer [Unknown]
  - Fatigue [Unknown]

NARRATIVE: CASE EVENT DATE: 201706
